FAERS Safety Report 8023789-1 (Version None)
Quarter: 2012Q1

REPORT INFORMATION
  Report Type: 
  Country: None (occurrence: None)
  Receive Date: 20120103
  Receipt Date: 20120103
  Transmission Date: 20120608
  Serious: Yes (Other)
  Sender: FDA-Public Use
  Company Number: None

PATIENT
  Sex: Female
  Weight: 41.2773 kg

DRUGS (1)
  1. KEPPRA XR [Suspect]
     Dosage: 500MG 3AM/4AM ORAL
     Route: 048
     Dates: start: 20110801

REACTIONS (1)
  - CONVULSION [None]
